FAERS Safety Report 15131771 (Version 1)
Quarter: 2018Q3

REPORT INFORMATION
  Report Type: Spontaneous
  Country: RU (occurrence: RU)
  Receive Date: 20180711
  Receipt Date: 20180711
  Transmission Date: 20181010
  Serious: Yes (Hospitalization)
  Sender: FDA-Public Use
  Company Number: RU-B.I. PHARMACEUTICALS,INC./RIDGEFIELD-2018-BI-034990

PATIENT
  Age: 72 Year
  Sex: Female
  Weight: 70 kg

DRUGS (11)
  1. ATORVASTATIN [Concomitant]
     Active Substance: ATORVASTATIN
     Indication: STENT PLACEMENT
  2. DIGOXIN. [Concomitant]
     Active Substance: DIGOXIN
     Indication: CORONARY ARTERY DISEASE
     Route: 048
     Dates: start: 2014
  3. METFORMIN [Concomitant]
     Active Substance: METFORMIN HYDROCHLORIDE
     Indication: TYPE 2 DIABETES MELLITUS
     Route: 048
  4. LORISTA [Concomitant]
     Active Substance: LOSARTAN POTASSIUM
     Indication: HYPERTENSION
     Route: 048
     Dates: start: 2011
  5. METOPROLOL. [Concomitant]
     Active Substance: METOPROLOL
     Indication: CORONARY ARTERY DISEASE
     Route: 048
     Dates: start: 2014
  6. PRADAXA [Suspect]
     Active Substance: DABIGATRAN ETEXILATE MESYLATE
     Indication: ATRIAL FIBRILLATION
     Route: 065
     Dates: start: 20180627, end: 20180703
  7. PRADAXA [Suspect]
     Active Substance: DABIGATRAN ETEXILATE MESYLATE
     Indication: ARTERIOSCLEROSIS CORONARY ARTERY
  8. PRADAXA [Suspect]
     Active Substance: DABIGATRAN ETEXILATE MESYLATE
     Indication: CORONARY ANGIOPLASTY
  9. ATORVASTATIN [Concomitant]
     Active Substance: ATORVASTATIN
     Indication: CORONARY ARTERY DISEASE
     Route: 048
     Dates: start: 2014
  10. PRADAXA [Suspect]
     Active Substance: DABIGATRAN ETEXILATE MESYLATE
     Indication: STENT PLACEMENT
  11. ATORVASTATIN [Concomitant]
     Active Substance: ATORVASTATIN
     Indication: CORONARY ANGIOPLASTY

REACTIONS (2)
  - Cough [Recovered/Resolved]
  - Asphyxia [Recovered/Resolved]

NARRATIVE: CASE EVENT DATE: 20180628
